FAERS Safety Report 13453624 (Version 1)
Quarter: 2017Q2

REPORT INFORMATION
  Report Type: Spontaneous
  Country: US (occurrence: US)
  Receive Date: 20170418
  Receipt Date: 20170418
  Transmission Date: 20170830
  Serious: No
  Sender: FDA-Public Use
  Company Number: US-ALLERGAN-1661595US

PATIENT
  Sex: Female
  Weight: 53.52 kg

DRUGS (1)
  1. LATISSE [Suspect]
     Active Substance: BIMATOPROST
     Indication: GROWTH OF EYELASHES
     Dosage: 2 GTT, QD
     Route: 061

REACTIONS (3)
  - Growth of eyelashes [Recovering/Resolving]
  - Madarosis [Recovering/Resolving]
  - Off label use [Unknown]
